FAERS Safety Report 6801476-2 (Version None)
Quarter: 2010Q2

REPORT INFORMATION
  Report Type: 
  Country: None (occurrence: None)
  Receive Date: 20100629
  Receipt Date: 20100623
  Transmission Date: 20101027
  Serious: Yes (Other)
  Sender: FDA-Public Use
  Company Number: GR-ROCHE-711512

PATIENT
  Age: 33 Year
  Sex: Male

DRUGS (1)
  1. PEGASYS [Suspect]
     Indication: HEPATITIS C
     Dosage: DOSE REPORTED: 180 MCG.
     Route: 058
     Dates: start: 20100127, end: 20100401

REACTIONS (2)
  - DILATATION VENTRICULAR [None]
  - PULMONARY HYPERTENSION [None]
